FAERS Safety Report 24689481 (Version 1)
Quarter: 2024Q4

REPORT INFORMATION
  Report Type: Spontaneous
  Country: CA (occurrence: CA)
  Receive Date: 20241203
  Receipt Date: 20241203
  Transmission Date: 20250114
  Serious: Yes (Other)
  Sender: Unknown Manufacturer
  Company Number: CA-862174955-ML2024-06263

PATIENT
  Sex: Female

DRUGS (1)
  1. RANOLAZINE [Suspect]
     Active Substance: RANOLAZINE
     Indication: Angina pectoris
     Dosage: DOSAGE: 500MG 1 TABLET TWICE DAILY BY MOUTH
     Route: 048
     Dates: start: 20230703

REACTIONS (1)
  - Angina pectoris [Unknown]
